FAERS Safety Report 6736999-8 (Version None)
Quarter: 2010Q2

REPORT INFORMATION
  Report Type: 
  Country: None (occurrence: None)
  Receive Date: 20100523
  Receipt Date: 20100301
  Transmission Date: 20101027
  Serious: No
  Sender: FDA-Public Use
  Company Number: US-ALLERGAN-1002642US

PATIENT
  Age: 78 Year
  Sex: Male

DRUGS (8)
  1. COMBIGAN [Suspect]
     Indication: INTRAOCULAR PRESSURE INCREASED
     Dosage: UNK, BID
     Route: 047
     Dates: start: 20100201
  2. COMBIGAN [Suspect]
     Dosage: UNK
     Route: 047
  3. FELODIPINE [Concomitant]
     Indication: HYPERTENSION
     Dosage: 5 MG, QAM
  4. VITAMIN B-12 [Concomitant]
     Indication: MEMORY IMPAIRMENT
  5. ASPIRIN [Concomitant]
     Dosage: 81 MG, QD
  6. LIPITOR [Concomitant]
     Indication: BLOOD CHOLESTEROL INCREASED
     Dosage: 10 MG, UNK
  7. FISH OIL [Concomitant]
  8. TERAZOSIN HCL [Concomitant]
     Dosage: 2 MG, QD

REACTIONS (4)
  - BLOOD PRESSURE DECREASED [None]
  - DIZZINESS [None]
  - INAPPROPRIATE SCHEDULE OF DRUG ADMINISTRATION [None]
  - SOMNOLENCE [None]
